FAERS Safety Report 12930933 (Version 1)
Quarter: 2016Q4

REPORT INFORMATION
  Report Type: Spontaneous
  Country: US (occurrence: US)
  Receive Date: 20161110
  Receipt Date: 20161110
  Transmission Date: 20170207
  Serious: No
  Sender: FDA-Public Use
  Company Number: US-JAZZ-2016-US-018532

PATIENT
  Sex: Female

DRUGS (50)
  1. ADDERALL [Concomitant]
     Active Substance: AMPHETAMINE ASPARTATE\AMPHETAMINE SULFATE\DEXTROAMPHETAMINE SACCHARATE\DEXTROAMPHETAMINE SULFATE
  2. B COMPLEX                          /00322001/ [Concomitant]
     Active Substance: CALCIUM PANTOTHENATE\CYANOCOBALAMIN\NIACINAMIDE\PYRIDOXINE HYDROCHLORIDE\RIBOFLAVIN\THIAMINE HYDROCHLORIDE
  3. FOLIC ACID. [Concomitant]
     Active Substance: FOLIC ACID
  4. NEUROLINK [Concomitant]
  5. VITAMIN B12 + FOLIC ACID [Concomitant]
  6. DAPSONE. [Concomitant]
     Active Substance: DAPSONE
  7. METHOTREXATE (METHOTREXATE SODIUM) [Concomitant]
     Active Substance: METHOTREXATE SODIUM
  8. ANUCORT-HC [Concomitant]
     Active Substance: HYDROCORTISONE ACETATE
  9. EFFEXOR XR [Concomitant]
     Active Substance: VENLAFAXINE HYDROCHLORIDE
  10. MAGNESIUM CITRATE                  /01486801/ [Concomitant]
  11. OX BILE [Concomitant]
  12. TRANSFER FACTOR                    /03633801/ [Concomitant]
  13. VITAMIN D3 [Concomitant]
     Active Substance: CHOLECALCIFEROL
  14. CYANOCOBALAMIN. [Concomitant]
     Active Substance: CYANOCOBALAMIN
  15. XYREM [Suspect]
     Active Substance: SODIUM OXYBATE
     Indication: NARCOLEPSY
     Dosage: 2.25 G, BID
     Route: 048
     Dates: start: 201107, end: 201107
  16. CHOLESTYRAMINE. [Concomitant]
     Active Substance: CHOLESTYRAMINE
  17. FOLTX [Concomitant]
     Active Substance: CYANOCOBALAMIN CO-57\FOLIC ACID\PYRIDOXINE HYDROCHLORIDE
  18. CLINDAMYCIN. [Concomitant]
     Active Substance: CLINDAMYCIN
  19. GLUTAGENICS-D/C^D                        /08000101/ [Concomitant]
  20. DIFLUCAN [Concomitant]
     Active Substance: FLUCONAZOLE
  21. MELATONIN CR                       /07129401/ [Concomitant]
  22. OLIVE LEAF EXTRACT [Concomitant]
  23. SUCCIMER DMSA [Concomitant]
  24. VSL#3 [Concomitant]
     Active Substance: PROBIOTICS NOS
  25. ADRENAL REBUILDER [Concomitant]
  26. ARMOUR THYROID [Concomitant]
     Active Substance: THYROID, PORCINE
  27. METFORMIN HYDROCHLORIDE. [Concomitant]
     Active Substance: METFORMIN HYDROCHLORIDE
  28. PROMETRIUM [Concomitant]
     Active Substance: PROGESTERONE
  29. THIAMINE                           /00056102/ [Concomitant]
  30. TRETINOIN. [Concomitant]
     Active Substance: TRETINOIN
  31. PREDNISONE                         /00044702/ [Concomitant]
     Active Substance: PREDNISONE
  32. NASONEX [Concomitant]
     Active Substance: MOMETASONE FUROATE
  33. SINGULAIR [Concomitant]
     Active Substance: MONTELUKAST SODIUM
  34. NAC                                /00082801/ [Concomitant]
  35. PS 100/120 [Concomitant]
  36. ACIPHEX EC [Concomitant]
  37. ADDERALL XR [Concomitant]
     Active Substance: AMPHETAMINE ASPARTATE\AMPHETAMINE SULFATE\DEXTROAMPHETAMINE SACCHARATE\DEXTROAMPHETAMINE SULFATE
  38. TRAZODONE                          /00447702/ [Concomitant]
     Active Substance: TRAZODONE HYDROCHLORIDE
  39. XYREM [Suspect]
     Active Substance: SODIUM OXYBATE
     Dosage: DOSE ADJUSTMENTS
     Route: 048
     Dates: start: 201107, end: 201608
  40. FIXMYSKIN HEALING BALM VANILLA FRAGRANCE [Concomitant]
     Active Substance: HYDROCORTISONE
  41. TRAZODONE                          /00447702/ [Concomitant]
     Active Substance: TRAZODONE HYDROCHLORIDE
  42. AZITHROMYCIN                       /00944302/ [Concomitant]
  43. PROVIGIL [Concomitant]
     Active Substance: MODAFINIL
  44. XYREM [Suspect]
     Active Substance: SODIUM OXYBATE
     Dosage: 3 G, BID
     Route: 048
     Dates: start: 201608
  45. BENZONATATE. [Concomitant]
     Active Substance: BENZONATATE
  46. COENZYME Q10 [Concomitant]
     Active Substance: UBIDECARENONE
  47. BEYAZ BC [Concomitant]
  48. IRON                               /00023503/ [Concomitant]
     Active Substance: IRON
  49. MAGNESIUM CITRATE                  /01486801/ [Concomitant]
  50. METROCREAM [Concomitant]
     Active Substance: METRONIDAZOLE

REACTIONS (1)
  - Orthostatic hypotension [Unknown]
